FAERS Safety Report 4832795-7 (Version None)
Quarter: 2005Q4

REPORT INFORMATION
  Report Type: 
  Country: None (occurrence: None)
  Receive Date: 20051117
  Receipt Date: 20051107
  Transmission Date: 20060501
  Serious: Yes (Life-Threatening, Other)
  Sender: FDA-Public Use
  Company Number: US_0511123728

PATIENT
  Age: 16 Year
  Sex: Male
  Weight: 68 kg

DRUGS (2)
  1. STRATTERA [Suspect]
     Indication: DEPRESSION
     Dosage: 18 MG DAY
     Dates: start: 20050930, end: 20051001
  2. EFFEXOR [Concomitant]

REACTIONS (5)
  - DEPRESSED MOOD [None]
  - OVERDOSE [None]
  - PERSONALITY CHANGE [None]
  - SUICIDE ATTEMPT [None]
  - TREATMENT NONCOMPLIANCE [None]
